FAERS Safety Report 6233114-4 (Version None)
Quarter: 2009Q2

REPORT INFORMATION
  Report Type: 
  Country: None (occurrence: None)
  Receive Date: 20090616
  Receipt Date: 20090616
  Transmission Date: 20091009
  Serious: No
  Sender: FDA-Public Use
  Company Number: None

PATIENT
  Age: 76 Year
  Sex: Male
  Weight: 64.9 kg

DRUGS (1)
  1. INSULIN [Suspect]
     Indication: DIABETES MELLITUS
     Dosage: 10 UNITS EVERY DAY SQ
     Route: 058
     Dates: start: 20090514, end: 20090612

REACTIONS (3)
  - ERYTHEMA MULTIFORME [None]
  - OEDEMA [None]
  - RASH [None]
